FAERS Safety Report 6260204-2 (Version None)
Quarter: 2009Q3

REPORT INFORMATION
  Report Type: 
  Country: None (occurrence: None)
  Receive Date: 20090708
  Receipt Date: 20090701
  Transmission Date: 20100115
  Serious: Yes (Hospitalization)
  Sender: FDA-Public Use
  Company Number: B0581492A

PATIENT
  Sex: Male

DRUGS (1)
  1. LAMICTAL [Suspect]
     Route: 048
     Dates: start: 20090506, end: 20090609

REACTIONS (6)
  - ABNORMAL BEHAVIOUR [None]
  - APHASIA [None]
  - BRADYPHRENIA [None]
  - CIRCADIAN RHYTHM SLEEP DISORDER [None]
  - MIDDLE INSOMNIA [None]
  - SPEECH DISORDER [None]
